FAERS Safety Report 8953069 (Version 1)
Quarter: 2012Q4

REPORT INFORMATION
  Report Type: Report from Study
  Country: US (occurrence: US)
  Receive Date: 20121205
  Receipt Date: 20121205
  Transmission Date: 20130627
  Serious: Yes (Hospitalization)
  Sender: FDA-Public Use
  Company Number: US-TEVA-373861USA

PATIENT
  Age: 54 Year
  Sex: Female
  Weight: 58.66 kg

DRUGS (10)
  1. TREANDA [Suspect]
     Indication: PRODUCT USED FOR UNKNOWN INDICATION
     Dates: start: 20091125
  2. UNSPECIFIED INGREDIENT [Suspect]
     Indication: MALIGNANT LYMPHOID NEOPLASM
     Route: 048
     Dates: start: 20091016
  3. LYRICA [Concomitant]
  4. VALTREX [Concomitant]
  5. NEXIUM [Concomitant]
  6. NEURONTIN [Concomitant]
  7. ZOLPIDEM [Concomitant]
  8. TYLENOL [Concomitant]
     Dates: start: 20091020
  9. AMOXI/CLAVULANATE [Concomitant]
  10. IMODIUM [Concomitant]
     Dosage: PRN

REACTIONS (3)
  - Contusion [Recovered/Resolved]
  - Asthenia [Recovered/Resolved]
  - Anaemia [Recovered/Resolved]
